FAERS Safety Report 14997224 (Version 5)
Quarter: 2019Q1

REPORT INFORMATION
  Report Type: Spontaneous
  Country: CZ (occurrence: CZ)
  Receive Date: 20180611
  Receipt Date: 20190225
  Transmission Date: 20190417
  Serious: Yes (Hospitalization, Disabling, Other)
  Sender: FDA-Public Use
  Company Number: CZ-MYLANLABS-2018M1037782

PATIENT
  Age: 69 Year
  Sex: Male

DRUGS (13)
  1. OXALIPLATIN. [Suspect]
     Active Substance: OXALIPLATIN
     Indication: METASTASES TO LIVER
  2. FOLINIC ACID [Suspect]
     Active Substance: LEUCOVORIN
     Indication: RECTAL CANCER STAGE IV
     Dosage: UNK,PART OF FOLFOX6 REGIMEN
     Route: 042
     Dates: start: 20160113, end: 201606
  3. CETUXIMAB. [Suspect]
     Active Substance: CETUXIMAB
     Indication: RECTAL ADENOCARCINOMA
     Dosage: 7 SERIES TREATMENT
     Route: 042
     Dates: start: 201601, end: 201606
  4. FOLFOX [Concomitant]
     Active Substance: FLUOROURACIL\LEUCOVORIN CALCIUM\OXALIPLATIN
     Indication: ADENOCARCINOMA
     Dosage: UNK
  5. OXALIPLATIN. [Suspect]
     Active Substance: OXALIPLATIN
     Indication: RECTAL CANCER STAGE IV
     Dosage: UNK,PART OF FOLFOX6 REGIMEN
     Route: 042
     Dates: start: 20160113, end: 201606
  6. OXALIPLATIN. [Suspect]
     Active Substance: OXALIPLATIN
     Indication: COLORECTAL ADENOCARCINOMA
  7. FOLFOX [Concomitant]
     Active Substance: FLUOROURACIL\LEUCOVORIN CALCIUM\OXALIPLATIN
     Indication: METASTASES TO LIVER
  8. INSULIN [Concomitant]
     Active Substance: INSULIN NOS
     Indication: TYPE 2 DIABETES MELLITUS
  9. CETUXIMAB. [Suspect]
     Active Substance: CETUXIMAB
     Indication: METASTASES TO LIVER
  10. CETUXIMAB. [Suspect]
     Active Substance: CETUXIMAB
     Indication: COLORECTAL ADENOCARCINOMA
  11. FLUOROURACIL. [Suspect]
     Active Substance: FLUOROURACIL
     Indication: RECTAL CANCER STAGE IV
     Dosage: UNK,PART OF FOLFOX6 REGIMEN
     Route: 042
  12. 5-FLUOROURACIL                     /00098801/ [Concomitant]
     Active Substance: FLUOROURACIL
  13. CETUXIMAB. [Suspect]
     Active Substance: CETUXIMAB
     Indication: RECTAL CANCER STAGE IV

REACTIONS (12)
  - Skin fissures [Unknown]
  - Traumatic fracture [Recovered/Resolved]
  - Femoral neck fracture [Recovered/Resolved with Sequelae]
  - Dermatitis acneiform [Recovered/Resolved]
  - Hypomagnesaemia [Recovered/Resolved]
  - Neutropenia [Recovered/Resolved]
  - Skin toxicity [Recovered/Resolved]
  - Paraesthesia [Recovered/Resolved]
  - Dyschezia [Unknown]
  - Acne [Recovered/Resolved]
  - Rash [Unknown]
  - Weight decreased [Unknown]

NARRATIVE: CASE EVENT DATE: 2016
